FAERS Safety Report 16347920 (Version 1)
Quarter: 2019Q2

REPORT INFORMATION
  Report Type: Spontaneous
  Country: UA (occurrence: UA)
  Receive Date: 20190523
  Receipt Date: 20190523
  Transmission Date: 20190711
  Serious: Yes (Hospitalization, Other)
  Sender: FDA-Public Use
  Company Number: UA-BAYER-2019-087196

PATIENT
  Age: 39 Year
  Sex: Female

DRUGS (1)
  1. JAYDESS [Suspect]
     Active Substance: LEVONORGESTREL
     Dosage: 14 MCG/24HR, CONT
     Route: 015
     Dates: start: 20170814

REACTIONS (8)
  - Drug ineffective [None]
  - Back pain [None]
  - Abdominal pain upper [None]
  - Ectopic pregnancy with contraceptive device [None]
  - Muscular weakness [None]
  - Haemorrhage in pregnancy [None]
  - Abdominal pain [None]
  - Syncope [None]
